FAERS Safety Report 20051891 (Version 3)
Quarter: 2022Q1

REPORT INFORMATION
  Report Type: Spontaneous
  Country: US (occurrence: US)
  Receive Date: 20211110
  Receipt Date: 20220104
  Transmission Date: 20220424
  Serious: Yes (Other)
  Sender: FDA-Public Use
  Company Number: US-BAYER-2021A244411

PATIENT
  Age: 34 Year
  Sex: Female
  Weight: 115.56 kg

DRUGS (4)
  1. MIRENA [Suspect]
     Active Substance: LEVONORGESTREL
     Indication: Intrauterine contraception
     Dosage: 20?G/DAY
     Route: 015
     Dates: start: 20210414, end: 20211021
  2. MINERALS\VITAMINS [Concomitant]
     Active Substance: MINERALS\VITAMINS
  3. LECITHIN [Concomitant]
     Active Substance: LECITHIN
  4. VALACYCLOVIR [Concomitant]
     Active Substance: VALACYCLOVIR HYDROCHLORIDE

REACTIONS (5)
  - Embedded device [Recovered/Resolved]
  - Genital haemorrhage [None]
  - Pelvic pain [None]
  - Menometrorrhagia [None]
  - Breast discharge [None]

NARRATIVE: CASE EVENT DATE: 20211013
